FAERS Safety Report 23948258 (Version 1)
Quarter: 2024Q2

REPORT INFORMATION
  Report Type: Spontaneous
  Country: US (occurrence: US)
  Receive Date: 20240607
  Receipt Date: 20240607
  Transmission Date: 20240716
  Serious: No
  Sender: FDA-Public Use
  Company Number: US-SA-SAC20240603001512

PATIENT
  Sex: Female
  Weight: 66 kg

DRUGS (24)
  1. DUPIXENT [Suspect]
     Active Substance: DUPILUMAB
     Indication: Asthma
     Dosage: 300 MG, QOW
     Route: 058
  2. VIMOVO [Concomitant]
     Active Substance: ESOMEPRAZOLE MAGNESIUM\NAPROXEN
  3. MONTELUKAST SODIUM [Concomitant]
     Active Substance: MONTELUKAST SODIUM
  4. LEVOTHYROXINE SODIUM [Concomitant]
     Active Substance: LEVOTHYROXINE SODIUM
  5. BROVANA [Concomitant]
     Active Substance: ARFORMOTEROL TARTRATE
  6. VENTOLIN HFA [Concomitant]
     Active Substance: ALBUTEROL SULFATE
  7. LIPITOR [Concomitant]
     Active Substance: ATORVASTATIN CALCIUM
  8. AMBIEN [Concomitant]
     Active Substance: ZOLPIDEM TARTRATE
  9. TENORMIN [Concomitant]
     Active Substance: ATENOLOL
  10. XOLAIR [Concomitant]
     Active Substance: OMALIZUMAB
  11. LATANOPROST [Concomitant]
     Active Substance: LATANOPROST
  12. FISH OIL [Concomitant]
     Active Substance: FISH OIL
  13. DILTIAZEM HYDROCHLORIDE [Concomitant]
     Active Substance: DILTIAZEM HYDROCHLORIDE
  14. CALCIUM\VITAMIN D [Concomitant]
     Active Substance: CALCIUM\VITAMIN D
  15. ALBUTEROL SULFATE\IPRATROPIUM BROMIDE [Concomitant]
     Active Substance: ALBUTEROL SULFATE\IPRATROPIUM BROMIDE
  16. METFORMIN HYDROCHLORIDE [Concomitant]
     Active Substance: METFORMIN HYDROCHLORIDE
  17. ASPIRINE EC [Concomitant]
  18. PULMICORT TURBUHALER [Concomitant]
     Active Substance: BUDESONIDE
  19. ESOMEPRAZOLE MAGNESIUM [Concomitant]
     Active Substance: ESOMEPRAZOLE MAGNESIUM
  20. PREDNISONE [Concomitant]
     Active Substance: PREDNISONE
  21. AZELASTINE HYDROCHLORIDE [Concomitant]
     Active Substance: AZELASTINE HYDROCHLORIDE
  22. RESTASIS [Concomitant]
     Active Substance: CYCLOSPORINE
  23. SINGULAIR [Concomitant]
     Active Substance: MONTELUKAST SODIUM
  24. HYZAAR [Concomitant]
     Active Substance: HYDROCHLOROTHIAZIDE\LOSARTAN POTASSIUM

REACTIONS (1)
  - Injection site pain [Unknown]
